FAERS Safety Report 7617558-1 (Version None)
Quarter: 2011Q3

REPORT INFORMATION
  Report Type: 
  Country: None (occurrence: None)
  Receive Date: 20110718
  Receipt Date: 20110706
  Transmission Date: 20111222
  Serious: Yes (Other)
  Sender: FDA-Public Use
  Company Number: US-JNJFOC-20110605394

PATIENT
  Sex: Female
  Weight: 51.1 kg

DRUGS (5)
  1. REMICADE [Suspect]
     Indication: CROHN'S DISEASE
     Route: 042
     Dates: start: 20110323
  2. EPIDUO [Concomitant]
  3. BENZACLIN [Concomitant]
  4. REMICADE [Suspect]
     Route: 042
     Dates: start: 20110610
  5. REMICADE [Suspect]
     Route: 042
     Dates: start: 20110504

REACTIONS (1)
  - ECZEMA HERPETICUM [None]
